FAERS Safety Report 8502945-X (Version None)
Quarter: 2012Q3

REPORT INFORMATION
  Report Type: 
  Country: None (occurrence: None)
  Receive Date: 20120711
  Receipt Date: 20120706
  Transmission Date: 20120928
  Serious: Yes (Other)
  Sender: FDA-Public Use
  Company Number: US-PFIZER INC-2012068316

PATIENT
  Sex: Female

DRUGS (2)
  1. SUTENT [Suspect]
     Dosage: 37.5 MG, UNK
     Route: 048
  2. SUTENT [Suspect]
     Indication: RENAL CELL CARCINOMA
     Dosage: 50 MG, 1X/DAY

REACTIONS (5)
  - RENAL CELL CARCINOMA [None]
  - HERPES OESOPHAGITIS [None]
  - PLATELET COUNT DECREASED [None]
  - WHITE BLOOD CELL COUNT DECREASED [None]
  - DISEASE PROGRESSION [None]
